FAERS Safety Report 21097609 (Version 1)
Quarter: 2022Q3

REPORT INFORMATION
  Report Type: Spontaneous
  Country: US (occurrence: US)
  Receive Date: 20220719
  Receipt Date: 20220719
  Transmission Date: 20221027
  Serious: Yes (Hospitalization)
  Sender: FDA-Public Use
  Company Number: US-CHEPLA-2022006206

PATIENT
  Age: 60 Year
  Sex: Female

DRUGS (5)
  1. CLONAZEPAM [Suspect]
     Active Substance: CLONAZEPAM
  2. CAPLYTA [Suspect]
     Active Substance: LUMATEPERONE
     Indication: Bipolar disorder
     Dosage: CAPLYTA FOR 5-6 DAYS?DAILY DOSE: 42 MILLIGRAM
  3. LITHIUM [Suspect]
     Active Substance: LITHIUM
  4. SEROQUEL [Suspect]
     Active Substance: QUETIAPINE FUMARATE
  5. DEPAKOTE [Suspect]
     Active Substance: DIVALPROEX SODIUM

REACTIONS (3)
  - Orthostatic hypotension [Unknown]
  - Fall [Unknown]
  - Head injury [Unknown]
